FAERS Safety Report 24208074 (Version 2)
Quarter: 2024Q3

REPORT INFORMATION
  Report Type: Other
  Country: GB (occurrence: GB)
  Receive Date: 20240814
  Receipt Date: 20240822
  Transmission Date: 20241017
  Serious: No
  Sender: BEIGENE
  Company Number: GB-BEIGENE-BGN-2024-012559

PATIENT

DRUGS (1)
  1. BRUKINSA [Suspect]
     Active Substance: ZANUBRUTINIB
     Indication: Waldenstrom^s macroglobulinaemia
     Dosage: DRUG NOT ADMINISTERED

REACTIONS (1)
  - No adverse event [Unknown]
